FAERS Safety Report 21119722 (Version 1)
Quarter: 2022Q3

REPORT INFORMATION
  Report Type: Report from Study
  Country: IT (occurrence: IT)
  Receive Date: 20220722
  Receipt Date: 20220722
  Transmission Date: 20221027
  Serious: Yes (Other)
  Sender: FDA-Public Use
  Company Number: None

PATIENT
  Age: 68 Year
  Sex: Female

DRUGS (9)
  1. BISOPROLOL [Suspect]
     Active Substance: BISOPROLOL
     Indication: Hypertension
     Dosage: 10 MILLIGRAM, QD (24 HRS)
     Route: 048
     Dates: start: 20210101, end: 20220302
  2. CANRENONE [Suspect]
     Active Substance: CANRENONE
     Indication: Hypertension
     Dosage: 50 MILLIGRAM, QD (24 HRS)
     Route: 048
     Dates: start: 20220101, end: 20220302
  3. HYDROCHLOROTHIAZIDE\OLMESARTAN MEDOXOMIL [Suspect]
     Active Substance: HYDROCHLOROTHIAZIDE\OLMESARTAN MEDOXOMIL
     Indication: Hypertension
     Dosage: 1 DOSAGE FORM, QD (24 HRS) 40/12.5 MG/DAY
     Route: 048
     Dates: start: 20220101, end: 20220302
  4. ALOGLIPTIN BENZOATE [Concomitant]
     Active Substance: ALOGLIPTIN BENZOATE
     Dosage: 25 MILLIGRAM, QD (24 HRS)
     Route: 065
  5. ATORVASTATIN [Concomitant]
     Active Substance: ATORVASTATIN
     Dosage: 10 MILLIGRAM, QD (24 HRS)
     Route: 065
  6. BROMAZEPAM [Concomitant]
     Active Substance: BROMAZEPAM
     Dosage: UNK
     Route: 065
  7. TRESIBA [Concomitant]
     Active Substance: INSULIN DEGLUDEC
     Dosage: 20 INTERNATIONAL UNIT, QD (24HRS)
     Route: 065
  8. METFORMIN HYDROCHLORIDE [Concomitant]
     Active Substance: METFORMIN HYDROCHLORIDE
     Dosage: 750 MILLIGRAM, BID (12 HRS)
     Route: 065
  9. LANSOPRAZOLE [Concomitant]
     Active Substance: LANSOPRAZOLE
     Dosage: 30 MILLIGRAM, QD (24 HRS)
     Route: 065

REACTIONS (3)
  - Hypertensive crisis [Recovered/Resolved]
  - Headache [Recovered/Resolved]
  - Drug ineffective [Recovered/Resolved]

NARRATIVE: CASE EVENT DATE: 20220302
